FAERS Safety Report 7738500-9 (Version None)
Quarter: 2011Q3

REPORT INFORMATION
  Report Type: 
  Country: None (occurrence: None)
  Receive Date: 20110906
  Receipt Date: 20110829
  Transmission Date: 20111222
  Serious: Yes (Hospitalization, Other)
  Sender: FDA-Public Use
  Company Number: 1000022658

PATIENT
  Age: 80 Year
  Sex: Male
  Weight: 67.27 kg

DRUGS (13)
  1. LANOXIN (DIGOXIN) (DIGOXIN) [Concomitant]
  2. NAMENDA [Suspect]
     Indication: DEMENTIA
     Dosage: 5 MG (5 MG, 1 IN 1 D), ORAL
     Route: 048
     Dates: start: 20110524, end: 20110530
  3. NAMENDA [Suspect]
     Indication: DEMENTIA
     Dosage: 5 MG (5 MG, 1 IN 1 D), ORAL
     Route: 048
     Dates: end: 20110725
  4. ZOCOR [Concomitant]
  5. AVODART (DUTASTERIDE) (DUTASTERIDE) [Concomitant]
  6. LISINOPRIL [Concomitant]
  7. LASIX [Concomitant]
  8. UROXATRAL (ALFUZOSIN HYDROCHLORIDE) (ALFUZOSIN HYDROCHLORIDE) [Concomitant]
  9. ENABLEX (DARIFENACIN) (DARIFENACIN) [Concomitant]
  10. EXELON (RIVASTIGMINE) (RIVASTIGMINE) [Concomitant]
  11. COREG (CARVEDILOL) (CARVEDILOL) [Concomitant]
  12. HYDROCHLOROTHIAZIDE [Concomitant]
  13. CRESTOR [Concomitant]

REACTIONS (9)
  - CEREBRAL ATROPHY [None]
  - CEREBROVASCULAR ACCIDENT [None]
  - CEREBRAL VENTRICLE DILATATION [None]
  - DEMENTIA [None]
  - INTRAVENTRICULAR HAEMORRHAGE [None]
  - FALL [None]
  - CONDITION AGGRAVATED [None]
  - DRUG INTERACTION [None]
  - SINUSITIS [None]
